FAERS Safety Report 7870067-7 (Version None)
Quarter: 2011Q4

REPORT INFORMATION
  Report Type: 
  Country: None (occurrence: None)
  Receive Date: 20111028
  Receipt Date: 20110113
  Transmission Date: 20120403
  Serious: Yes (Other)
  Sender: FDA-Public Use
  Company Number: US-AMGEN-USASP2011002258

PATIENT
  Age: 62 Year
  Sex: Female

DRUGS (1)
  1. ENBREL [Suspect]
     Indication: RHEUMATOID ARTHRITIS
     Dates: start: 20080901, end: 20101201

REACTIONS (3)
  - LOWER RESPIRATORY TRACT INFECTION FUNGAL [None]
  - CRYPTOCOCCAL FUNGAEMIA [None]
  - BACK PAIN [None]
